FAERS Safety Report 8481612-5 (Version None)
Quarter: 2012Q3

REPORT INFORMATION
  Report Type: 
  Country: None (occurrence: None)
  Receive Date: 20120702
  Receipt Date: 20120620
  Transmission Date: 20120928
  Serious: Yes (Hospitalization, Other)
  Sender: FDA-Public Use
  Company Number: FR-AMGEN-FRASP2012039769

PATIENT
  Age: 40 Year
  Sex: Male

DRUGS (7)
  1. MOPRAL                             /00661201/ [Concomitant]
     Dosage: UNK
  2. RIFAMPIN AND ISONIAZID [Concomitant]
     Dosage: UNK
     Dates: start: 20111001, end: 20120101
  3. POTASSIUM CHLORIDE [Concomitant]
     Dosage: UNK
     Route: 048
  4. METFORMIN HCL [Concomitant]
     Indication: TYPE 2 DIABETES MELLITUS
     Dosage: 1 DF, 2X/DAY
     Dates: start: 20120201
  5. PREDNISONE TAB [Concomitant]
     Indication: SARCOIDOSIS
     Dosage: 4 MG, ONCE DAILY
     Route: 048
     Dates: start: 20030101
  6. CACIT D3 [Concomitant]
     Dosage: UNK
  7. ENBREL [Suspect]
     Indication: PSORIASIS
     Dosage: 50 MG, WEEKLY
     Route: 058
     Dates: start: 20111117, end: 20120531

REACTIONS (5)
  - ASTHENIA [None]
  - CHEST X-RAY ABNORMAL [None]
  - SARCOIDOSIS [None]
  - INTERSTITIAL LUNG DISEASE [None]
  - DYSPNOEA [None]
